FAERS Safety Report 8885786 (Version 1)
Quarter: 2012Q4

REPORT INFORMATION
  Report Type: 
  Country: US (occurrence: US)
  Receive Date: 20121102
  Receipt Date: 20121102
  Transmission Date: 20130627
  Serious: Yes (Hospitalization)
  Sender: FDA-Public Use
  Company Number: US-MILLENNIUM PHARMACEUTICALS, INC.-2012-07623

PATIENT
  Age: 62 Year
  Sex: Male
  Weight: 242 kg

DRUGS (2)
  1. VELCADE [Suspect]
     Indication: MULTIPLE MYELOMA
     Dosage: 3 mg, 2/week
     Route: 058
     Dates: start: 20110314, end: 20110418
  2. DOXORUBICIN [Suspect]
     Indication: MULTIPLE MYELOMA
     Dosage: 30 mg/m2, UNK
     Route: 042
     Dates: start: 20110318, end: 20110418

REACTIONS (4)
  - Sepsis [Recovered/Resolved]
  - Renal failure acute [Recovered/Resolved]
  - Pancytopenia [Recovered/Resolved]
  - Clostridium difficile colitis [Recovered/Resolved]
